FAERS Safety Report 8810418 (Version 1)
Quarter: 2012Q4

REPORT INFORMATION
  Report Type: 
  Country: US (occurrence: US)
  Receive Date: 20120927
  Receipt Date: 20120927
  Transmission Date: 20130627
  Serious: No
  Sender: FDA-Public Use
  Company Number: US-009507513-1209USA001960

PATIENT
  Sex: Female
  Weight: 67.12 kg

DRUGS (3)
  1. PEG-INTRON [Suspect]
     Indication: HEPATITIS B
     Dosage: 120 Microgram, UNK
     Dates: start: 20120101
  2. VICTRELIS [Suspect]
     Indication: HEPATITIS B
     Dosage: UNK
     Dates: start: 20120129
  3. RIBASPHERE [Concomitant]
     Indication: HEPATITIS B
     Dosage: UNK
     Dates: start: 20120101

REACTIONS (13)
  - Dizziness postural [Unknown]
  - Blood glucose decreased [Unknown]
  - Skin lesion [Unknown]
  - Vomiting [Unknown]
  - Vomiting [Unknown]
  - Drug dose omission [Unknown]
  - Red blood cell count decreased [Unknown]
  - Weight decreased [Unknown]
  - Asthenia [Unknown]
  - White blood cell count decreased [Unknown]
  - Nausea [Unknown]
  - Decreased appetite [Unknown]
  - Dry skin [Unknown]
